FAERS Safety Report 7328602-3 (Version None)
Quarter: 2011Q1

REPORT INFORMATION
  Report Type: 
  Country: None (occurrence: None)
  Receive Date: 20110225
  Receipt Date: 20110225
  Transmission Date: 20110831
  Serious: Yes (Other)
  Sender: FDA-Public Use
  Company Number: None

PATIENT
  Age: 57 Year
  Sex: Male
  Weight: 95 kg

DRUGS (2)
  1. SPIRONOLACTONE [Suspect]
     Indication: ASCITES
     Dosage: 100MG DAILY PO
     Route: 048
  2. SPIRONOLACTONE [Suspect]
     Indication: ALCOHOLIC LIVER DISEASE
     Dosage: 100MG DAILY PO
     Route: 048

REACTIONS (2)
  - PLEURAL EFFUSION [None]
  - GYNAECOMASTIA [None]
